FAERS Safety Report 5754423-9 (Version None)
Quarter: 2008Q2

REPORT INFORMATION
  Report Type: 
  Country: None (occurrence: None)
  Receive Date: 20080530
  Receipt Date: 20080125
  Transmission Date: 20081010
  Serious: No
  Sender: FDA-Public Use
  Company Number: US-BOEHRINGER INGELHEIM GMBH, GERMANY-2007-BP-11955BP

PATIENT
  Sex: Female
  Weight: 67 kg

DRUGS (29)
  1. MIRAPEX [Suspect]
     Indication: RESTLESS LEGS SYNDROME
     Route: 048
     Dates: start: 20040211, end: 20070201
  2. ALPRAZOLAM [Concomitant]
     Indication: RESTLESS LEGS SYNDROME
  3. DEPAKOTE [Concomitant]
     Indication: RESTLESS LEGS SYNDROME
  4. DEPAKOTE [Concomitant]
     Indication: DEPRESSION
  5. BUPROPION HCL [Concomitant]
     Indication: DEPRESSION
  6. CYANOCOBALAMIN [Concomitant]
     Indication: GASTRIC BYPASS
  7. ADVAIR DISKUS 100/50 [Concomitant]
     Indication: ASTHMA
     Route: 055
  8. ALBUTEROL [Concomitant]
     Indication: ASTHMA
     Route: 055
  9. EFFEXOR [Concomitant]
  10. AMBIEN [Concomitant]
  11. SINEMET [Concomitant]
  12. URSODIOL [Concomitant]
  13. FAMOTIDINE [Concomitant]
  14. ROXICET [Concomitant]
  15. POTASSIUM CHLORIDE [Concomitant]
  16. ACCUPRIL [Concomitant]
  17. PREDNISONE TAB [Concomitant]
  18. COLYTE [Concomitant]
  19. FLONASE [Concomitant]
  20. BENZONATATE [Concomitant]
  21. ZETIA [Concomitant]
  22. ZOCOR [Concomitant]
  23. CALAN [Concomitant]
  24. MAXZIDE [Concomitant]
  25. ACTIGALL [Concomitant]
  26. VITAMIN B-12 [Concomitant]
  27. CALCIUM [Concomitant]
  28. CLARITIN [Concomitant]
  29. MYLICON [Concomitant]

REACTIONS (5)
  - DEPRESSION [None]
  - EMOTIONAL DISTRESS [None]
  - INJURY [None]
  - OBSESSIVE-COMPULSIVE DISORDER [None]
  - PATHOLOGICAL GAMBLING [None]
